FAERS Safety Report 15823306 (Version 3)
Quarter: 2019Q2

REPORT INFORMATION
  Report Type: Report from Study
  Country: US (occurrence: US)
  Receive Date: 20190114
  Receipt Date: 20190411
  Transmission Date: 20190711
  Serious: No
  Sender: FDA-Public Use
  Company Number: PHEH2019US001542

PATIENT
  Sex: Female

DRUGS (1)
  1. COSENTYX [Suspect]
     Active Substance: SECUKINUMAB
     Indication: PSORIASIS
     Dosage: 300 MG, QMO
     Route: 058

REACTIONS (6)
  - Pain in extremity [Unknown]
  - Weight increased [Unknown]
  - Skin fissures [Unknown]
  - Blood glucose increased [Unknown]
  - Blister [Unknown]
  - Drug ineffective [Unknown]
